FAERS Safety Report 5977716-9 (Version None)
Quarter: 2008Q4

REPORT INFORMATION
  Report Type: 
  Country: None (occurrence: None)
  Receive Date: 20081126
  Receipt Date: 20081120
  Transmission Date: 20090506
  Serious: Yes (Life-Threatening, Hospitalization)
  Sender: FDA-Public Use
  Company Number: 2008EN000165

PATIENT
  Age: 18 Year
  Sex: Female

DRUGS (5)
  1. ONCASPAR [Suspect]
     Indication: ACUTE LYMPHOCYTIC LEUKAEMIA
  2. CONJUGATED ESTROGENS [Suspect]
     Indication: CONTRACEPTION
  3. PREDNISONE TAB [Concomitant]
  4. FLUCONAZOLE [Concomitant]
  5. SULFAMETHOXAZOLE AND TRIMETHOPRIM [Concomitant]

REACTIONS (16)
  - ANAPHYLACTIC SHOCK [None]
  - ANXIETY [None]
  - CAPILLARY DISORDER [None]
  - CYANOSIS [None]
  - DYSPNOEA [None]
  - EMOTIONAL DISTRESS [None]
  - FEELING COLD [None]
  - HEADACHE [None]
  - NAUSEA [None]
  - OEDEMA [None]
  - OXYGEN SATURATION DECREASED [None]
  - PALLOR [None]
  - SKIN DISCOLOURATION [None]
  - SUPERIOR VENA CAVAL OCCLUSION [None]
  - THROMBOSIS [None]
  - VOMITING [None]
